FAERS Safety Report 17917704 (Version 1)
Quarter: 2020Q2

REPORT INFORMATION
  Report Type: Spontaneous
  Country: FR (occurrence: FR)
  Receive Date: 20200619
  Receipt Date: 20200619
  Transmission Date: 20200714
  Serious: Yes (Other)
  Sender: FDA-Public Use
  Company Number: FR-GALDERMA-FR2020028604

PATIENT
  Age: 28 Year
  Sex: Female
  Weight: 73 kg

DRUGS (3)
  1. HYDROCORTISONE. [Suspect]
     Active Substance: HYDROCORTISONE
     Indication: PRODUCT USED FOR UNKNOWN INDICATION
     Route: 065
  2. GRANUDOXY [Concomitant]
     Active Substance: DOXYCYCLINE
     Indication: ACNE
     Dosage: 100 MG
     Route: 048
     Dates: start: 20200312, end: 20200513
  3. EPIDUO [Suspect]
     Active Substance: ADAPALENE\BENZOYL PEROXIDE
     Indication: ACNE
     Route: 061

REACTIONS (2)
  - Drug ineffective [Unknown]
  - Skin hyperpigmentation [Recovering/Resolving]

NARRATIVE: CASE EVENT DATE: 2020
